FAERS Safety Report 12434056 (Version 1)
Quarter: 2016Q2

REPORT INFORMATION
  Report Type: Report from Study
  Country: SK (occurrence: SK)
  Receive Date: 20160603
  Receipt Date: 20160603
  Transmission Date: 20160815
  Serious: Yes (Hospitalization, Other)
  Sender: FDA-Public Use
  Company Number: SK-BRISTOL-MYERS SQUIBB COMPANY-BMS-2016-042481

PATIENT
  Weight: 103 kg

DRUGS (2)
  1. NIVOLUMAB [Suspect]
     Active Substance: NIVOLUMAB
     Indication: PRODUCT USED FOR UNKNOWN INDICATION
     Dosage: 300 MG, UNK
     Route: 065
     Dates: start: 20160121
  2. NIVOLUMAB [Suspect]
     Active Substance: NIVOLUMAB
     Dosage: 300 MG, UNK
     Route: 065
     Dates: start: 20160511

REACTIONS (6)
  - Toxic epidermal necrolysis [Recovering/Resolving]
  - Nausea [Unknown]
  - Fatigue [Unknown]
  - Oedema [Unknown]
  - Hypoalbuminaemia [Unknown]
  - Colitis [Recovering/Resolving]

NARRATIVE: CASE EVENT DATE: 20160512
